FAERS Safety Report 17824167 (Version 3)
Quarter: 2023Q1

REPORT INFORMATION
  Report Type: Spontaneous
  Country: CA (occurrence: None)
  Receive Date: 20200526
  Receipt Date: 20230105
  Transmission Date: 20230418
  Serious: Yes (Hospitalization)
  Sender: FDA-Public Use
  Company Number: CA-ROCHE-2604322

PATIENT
  Age: 3 Year
  Sex: Male

DRUGS (12)
  1. SOMATROPIN [Suspect]
     Active Substance: SOMATROPIN
     Indication: Growth hormone deficiency
     Dosage: THERAPY DURATION: 10.0 MONTHS
     Route: 058
  2. SOMATROPIN [Suspect]
     Active Substance: SOMATROPIN
     Route: 058
  3. SOMATROPIN [Suspect]
     Active Substance: SOMATROPIN
     Route: 058
  4. SOMATROPIN [Suspect]
     Active Substance: SOMATROPIN
     Route: 058
  5. CLOBAZAM [Concomitant]
     Active Substance: CLOBAZAM
     Route: 048
  6. CYPROHEPTADINE [Concomitant]
     Active Substance: CYPROHEPTADINE
     Route: 048
  7. KEPPRA [Concomitant]
     Active Substance: LEVETIRACETAM
     Route: 048
  8. PREDNISOLONE [Concomitant]
     Active Substance: PREDNISOLONE
     Route: 048
  9. SYNTHROID [Concomitant]
     Active Substance: LEVOTHYROXINE SODIUM
     Route: 048
  10. TOPAMAX [Concomitant]
     Active Substance: TOPIRAMATE
  11. ALVESCO [Concomitant]
     Active Substance: CICLESONIDE
     Route: 048
  12. VENTOLIN [Concomitant]
     Active Substance: ALBUTEROL SULFATE
     Route: 048

REACTIONS (9)
  - Glucocorticoid deficiency [Unknown]
  - Hydrocephalus [Unknown]
  - Hypothalamo-pituitary disorder [Unknown]
  - Pre-existing condition improved [Unknown]
  - Therapeutic response unexpected [Unknown]
  - Intentional underdose [Unknown]
  - Disease recurrence [Unknown]
  - Hypoglycaemia [Unknown]
  - Pyrexia [Unknown]
